FAERS Safety Report 10359627 (Version 2)
Quarter: 2014Q3

REPORT INFORMATION
  Report Type: Spontaneous
  Country: US (occurrence: US)
  Receive Date: 20140804
  Receipt Date: 20140924
  Transmission Date: 20150326
  Serious: Yes (Other)
  Sender: FDA-Public Use
  Company Number: US-JNJFOC-20140716403

PATIENT

DRUGS (2)
  1. FENRETINIDE [Interacting]
     Active Substance: FENRETINIDE
     Indication: NEUROBLASTOMA
     Route: 048
  2. KETOCONAZOLE. [Suspect]
     Active Substance: KETOCONAZOLE
     Indication: NEUROBLASTOMA
     Route: 048

REACTIONS (9)
  - Diarrhoea [Unknown]
  - Blood triglycerides increased [Unknown]
  - Rash [Unknown]
  - Drug level increased [Unknown]
  - Disease progression [Unknown]
  - Lymphopenia [Unknown]
  - Transaminases increased [Unknown]
  - Off label use [Unknown]
  - Drug interaction [Unknown]
